FAERS Safety Report 19360277 (Version 2)
Quarter: 2022Q2

REPORT INFORMATION
  Report Type: Spontaneous
  Country: US (occurrence: US)
  Receive Date: 20210601
  Receipt Date: 20220418
  Transmission Date: 20220721
  Serious: No
  Sender: FDA-Public Use
  Company Number: US-PFIZER INC-2019430177

PATIENT
  Age: 68 Year
  Sex: Female

DRUGS (1)
  1. PREMARIN [Suspect]
     Active Substance: ESTROGENS, CONJUGATED
     Dosage: 1 G, DAILY, [INSERT 0.5 APPLICATORS FULL EVERY DAY BY VAGINAL ROUTE FOR 90 DAYS]
     Route: 067

REACTIONS (3)
  - Amnesia [Unknown]
  - Off label use [Unknown]
  - Product use issue [Unknown]
